FAERS Safety Report 7680355-5 (Version None)
Quarter: 2011Q3

REPORT INFORMATION
  Report Type: 
  Country: None (occurrence: None)
  Receive Date: 20110812
  Receipt Date: 20110803
  Transmission Date: 20111222
  Serious: Yes (Hospitalization)
  Sender: FDA-Public Use
  Company Number: FR-GLAXOSMITHKLINE-B0736722A

PATIENT
  Age: 73 Year
  Sex: Male

DRUGS (8)
  1. AREDIA [Concomitant]
  2. PREDNISONE [Concomitant]
  3. BISOPROLOL FUMARATE [Concomitant]
  4. EPREX [Concomitant]
     Indication: ANAEMIA
     Dosage: 30000IU WEEKLY
     Dates: start: 20100101
  5. ALKERAN [Suspect]
     Indication: MULTIPLE MYELOMA
     Route: 065
     Dates: start: 20100105, end: 20110525
  6. THALIDOMIDE [Suspect]
     Indication: MULTIPLE MYELOMA
     Route: 042
     Dates: start: 20100105, end: 20110525
  7. PAMIDRONATE DISODIUM [Concomitant]
     Route: 042
  8. PERINDOPRIL ERBUMINE [Concomitant]

REACTIONS (3)
  - ANAEMIA [None]
  - THROMBOCYTOPENIA [None]
  - ERYTHROLEUKAEMIA [None]
